FAERS Safety Report 11091129 (Version 2)
Quarter: 2015Q2

REPORT INFORMATION
  Report Type: Spontaneous
  Country: FR (occurrence: FR)
  Receive Date: 20150505
  Receipt Date: 20150602
  Transmission Date: 20150821
  Serious: Yes (Death, Hospitalization)
  Sender: FDA-Public Use
  Company Number: FR-INTERMUNE, INC.-201504IM014937

PATIENT
  Age: 76 Year
  Sex: Male

DRUGS (4)
  1. ESBRIET [Suspect]
     Active Substance: PIRFENIDONE
     Dosage: 801 MG
     Route: 048
     Dates: start: 20150326, end: 20150402
  2. AMLOR-5 [Concomitant]
     Indication: HYPERTENSION
  3. ESBRIET [Suspect]
     Active Substance: PIRFENIDONE
     Indication: IDIOPATHIC PULMONARY FIBROSIS
     Route: 048
     Dates: start: 20141124
  4. TAHOR 80 [Concomitant]
     Indication: HYPERTENSION

REACTIONS (6)
  - Acute respiratory failure [Unknown]
  - Weight decreased [Unknown]
  - Idiopathic pulmonary fibrosis [Fatal]
  - Diarrhoea [Unknown]
  - Decreased appetite [Unknown]
  - Erythema [Recovering/Resolving]

NARRATIVE: CASE EVENT DATE: 201503
